FAERS Safety Report 19901083 (Version 1)
Quarter: 2021Q3

REPORT INFORMATION
  Report Type: Spontaneous
  Country: IN (occurrence: IN)
  Receive Date: 20210930
  Receipt Date: 20210930
  Transmission Date: 20211014
  Serious: Yes (Other)
  Sender: FDA-Public Use
  Company Number: IN-PFIZER INC-202101226465

PATIENT
  Age: 56 Year
  Sex: Female

DRUGS (7)
  1. PAN [Concomitant]
     Dosage: UNK, 1X/DAY (40 1 OD X 30 D)
  2. DEXORANGE [Concomitant]
     Dosage: 1 DF, 1X/DAY (1 OD X 30 D)
  3. EMSET [Concomitant]
     Dosage: 4 MG SOS X 30 D
  4. NEUROBION FORTE [CYANOCOBALAMIN;PYRIDOXINE HYDROCHLORIDE;THIAMINE DISU [Concomitant]
     Dosage: 1 DF, 1X/DAY (1OD X 30 D)
  5. ULTRACET [Concomitant]
     Active Substance: ACETAMINOPHEN\TRAMADOL HYDROCHLORIDE
     Dosage: SOS X 30 D
  6. VITCOFOL [FOLIC ACID;NICOTINAMIDE;VITAMIN B12 NOS] [Concomitant]
     Dosage: 1 DF, 1X/DAY (1 OD X 30 D)
  7. CRIZALK [Suspect]
     Active Substance: CRIZOTINIB
     Indication: LUNG ADENOCARCINOMA
     Dosage: 250 MG, 2X/DAY
     Route: 048
     Dates: start: 20210701

REACTIONS (2)
  - Hand fracture [Unknown]
  - Fall [Unknown]

NARRATIVE: CASE EVENT DATE: 2021
